FAERS Safety Report 5971516-1 (Version None)
Quarter: 2008Q4

REPORT INFORMATION
  Report Type: 
  Country: None (occurrence: None)
  Receive Date: 20081126
  Receipt Date: 20081126
  Transmission Date: 20090506
  Serious: Yes (Disabling)
  Sender: FDA-Public Use
  Company Number: None

PATIENT
  Age: 12 Year
  Sex: Male
  Weight: 56.6996 kg

DRUGS (2)
  1. RISPERIDONE [Suspect]
     Indication: AUTISM SPECTRUM DISORDER
     Dosage: 3 MG BID
     Dates: start: 20081121
  2. RISPERIDONE [Suspect]
     Indication: MENTAL RETARDATION
     Dosage: 3 MG BID
     Dates: start: 20081121

REACTIONS (2)
  - HEADACHE [None]
  - PRODUCT QUALITY ISSUE [None]
